FAERS Safety Report 13071802 (Version 1)
Quarter: 2016Q4

REPORT INFORMATION
  Report Type: Spontaneous
  Country: US (occurrence: US)
  Receive Date: 20161229
  Receipt Date: 20161229
  Transmission Date: 20170207
  Serious: Yes (Death, Other)
  Sender: FDA-Public Use
  Company Number: US-JNJFOC-20161224059

PATIENT
  Sex: Male

DRUGS (1)
  1. XARELTO [Suspect]
     Active Substance: RIVAROXABAN
     Indication: PRODUCT USED FOR UNKNOWN INDICATION
     Route: 048
     Dates: start: 20131224, end: 20150127

REACTIONS (5)
  - Death [Fatal]
  - Retroperitoneal haemorrhage [Unknown]
  - Pulmonary embolism [Unknown]
  - Respiratory failure [Unknown]
  - Haematuria [Unknown]

NARRATIVE: CASE EVENT DATE: 20150127
